FAERS Safety Report 10158468 (Version 1)
Quarter: 2014Q2

REPORT INFORMATION
  Report Type: Spontaneous
  Country: US (occurrence: US)
  Receive Date: 20140507
  Receipt Date: 20140507
  Transmission Date: 20141212
  Serious: No
  Sender: FDA-Public Use
  Company Number: US-AMGEN-USASP2014011671

PATIENT
  Age: 72 Year
  Sex: Female

DRUGS (3)
  1. ARANESP [Suspect]
     Indication: ANAEMIA
     Dosage: UNK
     Route: 065
     Dates: start: 20131219
  2. TAXOL [Concomitant]
     Route: 065
  3. CISPLATIN [Concomitant]
     Route: 065

REACTIONS (2)
  - Tooth disorder [Unknown]
  - Haemoglobin decreased [Unknown]
